FAERS Safety Report 8198346-7 (Version None)
Quarter: 2012Q1

REPORT INFORMATION
  Report Type: 
  Country: None (occurrence: None)
  Receive Date: 20120309
  Receipt Date: 20120104
  Transmission Date: 20120608
  Serious: No
  Sender: FDA-Public Use
  Company Number: US-AMGEN-USASP2012000355

PATIENT
  Sex: Female

DRUGS (4)
  1. FISH OIL [Concomitant]
  2. PROLIA [Suspect]
     Indication: OSTEOPOROSIS POSTMENOPAUSAL
     Dosage: 60 MG, Q6MO
     Dates: start: 20111201
  3. VITAMIN D2 + CALCIUM [Concomitant]
  4. PRAVASTATIN [Concomitant]

REACTIONS (3)
  - NERVOUSNESS [None]
  - STRESS [None]
  - HYPERTENSION [None]
